FAERS Safety Report 24927067 (Version 1)
Quarter: 2025Q1

REPORT INFORMATION
  Report Type: Spontaneous
  Country: IN (occurrence: IN)
  Receive Date: 20250205
  Receipt Date: 20250205
  Transmission Date: 20250409
  Serious: Yes (Life-Threatening, Hospitalization)
  Sender: STRIDES
  Company Number: None

PATIENT
  Age: 70 Year
  Sex: Male

DRUGS (10)
  1. PREDNISOLONE [Interacting]
     Active Substance: PREDNISOLONE
     Indication: Prostate cancer
     Route: 065
  2. PREDNISOLONE [Interacting]
     Active Substance: PREDNISOLONE
     Indication: Metastases to bone
  3. PREDNISOLONE [Interacting]
     Active Substance: PREDNISOLONE
     Indication: Metastases to lymph nodes
  4. PREDNISOLONE [Interacting]
     Active Substance: PREDNISOLONE
     Indication: Adenocarcinoma
  5. ROSUVASTATIN [Interacting]
     Active Substance: ROSUVASTATIN
     Indication: Coronary artery disease
     Route: 065
  6. ROSUVASTATIN [Interacting]
     Active Substance: ROSUVASTATIN
     Indication: Hypertension
     Route: 065
  7. ABIRATERONE ACETATE [Interacting]
     Active Substance: ABIRATERONE ACETATE
     Indication: Prostate cancer
     Route: 065
  8. ABIRATERONE ACETATE [Interacting]
     Active Substance: ABIRATERONE ACETATE
     Indication: Metastases to bone
  9. ABIRATERONE ACETATE [Interacting]
     Active Substance: ABIRATERONE ACETATE
     Indication: Metastases to lymph nodes
  10. ABIRATERONE ACETATE [Interacting]
     Active Substance: ABIRATERONE ACETATE
     Indication: Adenocarcinoma

REACTIONS (6)
  - Metabolic acidosis [Recovered/Resolved]
  - Liver function test abnormal [Recovered/Resolved]
  - Drug interaction [Recovered/Resolved]
  - Rhabdomyolysis [Recovered/Resolved]
  - Acute kidney injury [Recovered/Resolved]
  - Off label use [Unknown]
